FAERS Safety Report 7048810-9 (Version None)
Quarter: 2010Q4

REPORT INFORMATION
  Report Type: 
  Country: None (occurrence: None)
  Receive Date: 20101018
  Receipt Date: 20101006
  Transmission Date: 20110411
  Serious: Yes (Other)
  Sender: FDA-Public Use
  Company Number: PHHY2010US67562

PATIENT
  Sex: Female

DRUGS (5)
  1. RECLAST [Suspect]
     Dosage: UNK
     Dates: start: 20080101
  2. RECLAST [Suspect]
     Dosage: UNK
     Dates: start: 20090101
  3. FOSAMAX [Suspect]
  4. BONIVA [Suspect]
  5. ACTONEL [Suspect]

REACTIONS (4)
  - BONE DENSITY DECREASED [None]
  - NAIL GROWTH ABNORMAL [None]
  - NAUSEA [None]
  - SURGERY [None]
